FAERS Safety Report 11146556 (Version 4)
Quarter: 2015Q3

REPORT INFORMATION
  Report Type: Spontaneous
  Country: US (occurrence: US)
  Receive Date: 20150528
  Receipt Date: 20150821
  Transmission Date: 20151125
  Serious: Yes (Hospitalization, Other)
  Sender: FDA-Public Use
  Company Number: US-JNJFOC-20150519096

PATIENT
  Age: 75 Year
  Sex: Male
  Weight: 118 kg

DRUGS (24)
  1. HUMALOG [Concomitant]
     Active Substance: INSULIN LISPRO
     Dosage: 100UNIT/ML
     Route: 058
  2. OXYCONTIN [Concomitant]
     Active Substance: OXYCODONE HYDROCHLORIDE
     Route: 048
     Dates: end: 2015
  3. ACYCLOVIR. [Concomitant]
     Active Substance: ACYCLOVIR
  4. LEVOTHYROXINE SODIUM. [Concomitant]
     Active Substance: LEVOTHYROXINE SODIUM
  5. BACTRIM DS [Concomitant]
     Active Substance: SULFAMETHOXAZOLE\TRIMETHOPRIM
  6. FISH OIL OMEGA 3 [Concomitant]
     Dosage: 1000 MG CAPSULE,2G
     Route: 048
  7. MAGNESIUM OXIDE. [Concomitant]
     Active Substance: MAGNESIUM OXIDE
     Route: 048
  8. LYRICA [Concomitant]
     Active Substance: PREGABALIN
     Route: 048
  9. EDARBYCLOR [Concomitant]
     Active Substance: AZILSARTAN KAMEDOXOMIL\CHLORTHALIDONE
     Dates: end: 2015
  10. CALCIUM AND VITAMIN D [Concomitant]
     Active Substance: CALCIUM\VITAMIN D
     Dosage: 500/200
     Route: 048
  11. XALATAN [Concomitant]
     Active Substance: LATANOPROST
     Dosage: 1 DROP IN RIGHT EYE NIGHTLY
     Route: 047
  12. OXYCONTIN [Concomitant]
     Active Substance: OXYCODONE HYDROCHLORIDE
     Route: 048
     Dates: end: 2015
  13. PROTONIX [Concomitant]
     Active Substance: PANTOPRAZOLE SODIUM
     Route: 048
  14. IMBRUVICA [Suspect]
     Active Substance: IBRUTINIB
     Indication: CHRONIC LYMPHOCYTIC LEUKAEMIA
     Route: 048
     Dates: start: 20150312, end: 2015
  15. FOLIC ACID. [Concomitant]
     Active Substance: FOLIC ACID
     Dosage: 1 TABLET
     Route: 048
  16. BACTRIM DS [Concomitant]
     Active Substance: SULFAMETHOXAZOLE\TRIMETHOPRIM
     Dosage: 400-80MG 3*/WEEK
  17. HUMULIN N [Concomitant]
     Active Substance: INSULIN HUMAN
     Dosage: 17 UNITS
     Route: 058
  18. IMBRUVICA [Suspect]
     Active Substance: IBRUTINIB
     Indication: CHRONIC LYMPHOCYTIC LEUKAEMIA
     Route: 048
  19. LIPITOR [Concomitant]
     Active Substance: ATORVASTATIN CALCIUM
     Route: 048
  20. KLOR-CON [Concomitant]
     Active Substance: POTASSIUM CHLORIDE
     Dosage: 10 DF
  21. PREDNISONE. [Concomitant]
     Active Substance: PREDNISONE
     Indication: AUTOIMMUNE HAEMOLYTIC ANAEMIA
  22. OXYCODONE HCL [Concomitant]
     Active Substance: OXYCODONE HYDROCHLORIDE
  23. COUMADIN [Concomitant]
     Active Substance: WARFARIN SODIUM
     Indication: ATRIAL FIBRILLATION
     Dates: end: 2015
  24. ZYLOPRIM [Concomitant]
     Active Substance: ALLOPURINOL
     Route: 048

REACTIONS (24)
  - Bacillus bacteraemia [Unknown]
  - Pneumococcal sepsis [Unknown]
  - Empyema [Not Recovered/Not Resolved]
  - Haemothorax [Unknown]
  - Diarrhoea [Recovered/Resolved]
  - Pyrexia [Unknown]
  - Splenic infarction [Unknown]
  - Portal hypertension [Unknown]
  - Acute kidney injury [Recovered/Resolved]
  - Oedema peripheral [Unknown]
  - Asthenia [Unknown]
  - Anticoagulation drug level above therapeutic [Unknown]
  - Hepatocellular carcinoma [Unknown]
  - Respiratory failure [Recovering/Resolving]
  - Ammonia increased [Unknown]
  - Encephalopathy [Recovering/Resolving]
  - Breakthrough pain [Unknown]
  - Hyponatraemia [Unknown]
  - Aortic aneurysm [Unknown]
  - Pleural effusion [Unknown]
  - Leukocytosis [Unknown]
  - Ascites [Unknown]
  - Haemoglobin decreased [Recovering/Resolving]
  - Lactic acidosis [Unknown]

NARRATIVE: CASE EVENT DATE: 2015
